FAERS Safety Report 6093994-2 (Version None)
Quarter: 2009Q1

REPORT INFORMATION
  Report Type: 
  Country: None (occurrence: None)
  Receive Date: 20090226
  Receipt Date: 20090220
  Transmission Date: 20090719
  Serious: Yes (Other)
  Sender: FDA-Public Use
  Company Number: B0558434A

PATIENT
  Age: 18 Year
  Sex: Male

DRUGS (4)
  1. RELENZA [Suspect]
     Dosage: 10MG TWICE PER DAY
     Route: 055
     Dates: start: 20090204, end: 20090205
  2. ASTOMIN [Concomitant]
     Indication: INFLUENZA
     Route: 048
     Dates: start: 20090203, end: 20090206
  3. CALONAL [Concomitant]
     Indication: INFLUENZA
     Dosage: 1200MG PER DAY
     Route: 048
     Dates: start: 20090203, end: 20090206
  4. MIYA BM [Concomitant]
     Indication: INFLUENZA
     Route: 048
     Dates: start: 20090203, end: 20090206

REACTIONS (3)
  - ABNORMAL BEHAVIOUR [None]
  - BODY TEMPERATURE INCREASED [None]
  - SPEECH DISORDER [None]
